FAERS Safety Report 14957258 (Version 1)
Quarter: 2018Q2

REPORT INFORMATION
  Report Type: Spontaneous
  Country: JP (occurrence: JP)
  Receive Date: 20180531
  Receipt Date: 20180531
  Transmission Date: 20180711
  Serious: Yes (Other)
  Sender: FDA-Public Use
  Company Number: JP-PFIZER INC-2018215042

PATIENT
  Age: 21 Month
  Weight: 11.5 kg

DRUGS (1)
  1. GABAPEN [Suspect]
     Active Substance: GABAPENTIN
     Dosage: 600 MG, APPROXIMATELY

REACTIONS (2)
  - Acute kidney injury [Recovering/Resolving]
  - Drug administered to patient of inappropriate age [Unknown]
